FAERS Safety Report 4872080-0 (Version None)
Quarter: 2005Q4

REPORT INFORMATION
  Report Type: 
  Country: None (occurrence: None)
  Receive Date: 20051230
  Receipt Date: 20051219
  Transmission Date: 20060501
  Serious: Yes (Hospitalization)
  Sender: FDA-Public Use
  Company Number: 2005BI019083

PATIENT
  Age: 70 Year
  Sex: Female

DRUGS (1)
  1. AVONEX [Suspect]
     Indication: MULTIPLE SCLEROSIS
     Dosage: 30 UG; QW; IM
     Route: 030
     Dates: start: 20000601

REACTIONS (8)
  - CONFUSIONAL STATE [None]
  - DIVERTICULITIS [None]
  - GASTRITIS [None]
  - KIDNEY INFECTION [None]
  - MENTAL DISORDER [None]
  - NAUSEA [None]
  - OXYGEN SATURATION ABNORMAL [None]
  - ULCER [None]
